FAERS Safety Report 23037131 (Version 1)
Quarter: 2023Q4

REPORT INFORMATION
  Report Type: Spontaneous
  Country: GB (occurrence: GB)
  Receive Date: 20231006
  Receipt Date: 20231006
  Transmission Date: 20240109
  Serious: No
  Sender: FDA-Public Use
  Company Number: None

PATIENT
  Age: 61 Year
  Sex: Male
  Weight: 146 kg

DRUGS (15)
  1. IBUPROFEN [Suspect]
     Active Substance: IBUPROFEN
     Indication: Product used for unknown indication
     Dosage: UNK (TABLET)
     Route: 065
     Dates: start: 20230526
  2. AMITRIPTYLINE HYDROCHLORIDE [Concomitant]
     Active Substance: AMITRIPTYLINE HYDROCHLORIDE
     Indication: Ill-defined disorder
     Dosage: UNK, HS (ONE TO BE TAKEN EACH NIGHT)
     Route: 065
     Dates: start: 20230302
  3. AMLODIPINE [Concomitant]
     Active Substance: AMLODIPINE BESYLATE
     Indication: Ill-defined disorder
     Dosage: UNK, QD (TAKE ONE DAILY)
     Route: 065
     Dates: start: 20230302
  4. ATORVASTATIN [Concomitant]
     Active Substance: ATORVASTATIN
     Indication: Ill-defined disorder
     Dosage: UNK, QD (TAKE ONE DAILY)
     Route: 065
     Dates: start: 20230302
  5. CLOPIDOGREL [Concomitant]
     Active Substance: CLOPIDOGREL BISULFATE
     Indication: Ill-defined disorder
     Dosage: UNK, OD (TAKE ONE ONCE DAILY)
     Route: 065
     Dates: start: 20230302
  6. DULOXETINE [Concomitant]
     Active Substance: DULOXETINE
     Indication: Ill-defined disorder
     Dosage: UNK, QD (EVERY DAY)
     Route: 065
     Dates: start: 20230609
  7. FLUOXETINE [Concomitant]
     Active Substance: FLUOXETINE HYDROCHLORIDE
     Indication: Ill-defined disorder
     Dosage: UNK, QD (TAKE ONE DAILY)
     Route: 065
     Dates: start: 20230302, end: 20230511
  8. INDAPAMIDE [Concomitant]
     Active Substance: INDAPAMIDE
     Indication: Ill-defined disorder
     Dosage: UNK (TAKE ONE EACH MORNING)
     Route: 065
     Dates: start: 20230302
  9. LACTULOSE [Concomitant]
     Active Substance: LACTULOSE
     Indication: Ill-defined disorder
     Dosage: 15 MILLILITER, BID (TWICE DAILY)
     Route: 065
     Dates: start: 20230302
  10. LANSOPRAZOLE [Concomitant]
     Active Substance: LANSOPRAZOLE
     Indication: Ill-defined disorder
     Dosage: UNK, OD (TAKE ONE ONCE DAILY 30 MINUTES BEFORE FOOD)
     Route: 065
     Dates: start: 20230302
  11. OXYCODONE HYDROCHLORIDE [Concomitant]
     Active Substance: OXYCODONE HYDROCHLORIDE
     Indication: Ill-defined disorder
     Dosage: 40 MILLIGRAM (TAKE TWO IN A MORNING ( TOTAL A.M. DOSE = 40 MG)
     Route: 065
     Dates: start: 20230302
  12. METFORMIN [Concomitant]
     Active Substance: METFORMIN HYDROCHLORIDE
     Indication: Ill-defined disorder
     Dosage: UNK, BID (TWO TO BE TAKEN TWICE DAILY WITH FOOD)
     Route: 065
     Dates: start: 20230302
  13. OZEMPIC [Concomitant]
     Active Substance: SEMAGLUTIDE
     Indication: Ill-defined disorder
     Dosage: UNK (USE AS DIRECTED)
     Route: 065
     Dates: start: 20230302
  14. PREGABALIN [Concomitant]
     Active Substance: PREGABALIN
     Indication: Ill-defined disorder
     Dosage: UNK, BID (TAKE ONE TWICE DAILY)
     Route: 065
     Dates: start: 20230302
  15. RAMIPRIL [Concomitant]
     Active Substance: RAMIPRIL
     Indication: Ill-defined disorder
     Dosage: UNK, QD (TAKE ONE DAILY)
     Route: 065
     Dates: start: 20230302

REACTIONS (2)
  - Abdominal pain upper [Unknown]
  - Nausea [Recovered/Resolved]

NARRATIVE: CASE EVENT DATE: 20230526
